FAERS Safety Report 7473353-8 (Version None)
Quarter: 2011Q2

REPORT INFORMATION
  Report Type: 
  Country: None (occurrence: None)
  Receive Date: 20110503
  Receipt Date: 20110420
  Transmission Date: 20111010
  Serious: Yes (Other)
  Sender: FDA-Public Use
  Company Number: 894679

PATIENT
  Age: 72 Year
  Sex: Female

DRUGS (1)
  1. HEPARIN SODIUM INJECTION [Suspect]
     Indication: PRODUCT USED FOR UNKNOWN INDICATION
     Dosage: 3X THAN THE USUAL DOSE

REACTIONS (9)
  - LARYNGEAL OEDEMA [None]
  - THROMBOSIS IN DEVICE [None]
  - OXYGEN SATURATION DECREASED [None]
  - DYSPNOEA [None]
  - PROCEDURAL NAUSEA [None]
  - WRONG TECHNIQUE IN DRUG USAGE PROCESS [None]
  - DRUG EFFECT DECREASED [None]
  - INCORRECT DOSE ADMINISTERED [None]
  - PROCEDURAL VOMITING [None]
